FAERS Safety Report 8391087-2 (Version None)
Quarter: 2012Q2

REPORT INFORMATION
  Report Type: 
  Country: None (occurrence: None)
  Receive Date: 20120529
  Receipt Date: 20120518
  Transmission Date: 20120825
  Serious: Yes (Other)
  Sender: FDA-Public Use
  Company Number: JP-VERTEX PHARMACEUTICALS INC.-AE-2012-007659

PATIENT
  Age: 47 Year
  Sex: Male

DRUGS (8)
  1. PEG-INTRON [Concomitant]
     Route: 051
     Dates: start: 20120328
  2. PEG-INTRON [Concomitant]
     Route: 051
     Dates: start: 20120321, end: 20120321
  3. URSO 250 [Concomitant]
     Route: 048
     Dates: start: 20091002, end: 20120214
  4. PEG-INTRON [Concomitant]
     Indication: HEPATITIS C
     Route: 051
     Dates: start: 20120314, end: 20120314
  5. RIBAVIRIN [Concomitant]
     Indication: HEPATITIS C
     Route: 048
     Dates: start: 20120314
  6. GLYCYRON [Concomitant]
     Route: 048
     Dates: start: 20091002, end: 20120214
  7. POSTERISAN [Concomitant]
     Route: 061
     Dates: start: 20120318, end: 20120403
  8. TELAVIC (TELAPREVIR) [Suspect]
     Indication: HEPATITIS C
     Route: 048
     Dates: start: 20120314

REACTIONS (6)
  - PRURITUS [None]
  - DIARRHOEA [None]
  - NEUTROPHIL COUNT DECREASED [None]
  - HYPERURICAEMIA [None]
  - DRUG INTERACTION [None]
  - INJECTION SITE ERYTHEMA [None]
